FAERS Safety Report 10539499 (Version 2)
Quarter: 2014Q4

REPORT INFORMATION
  Report Type: Spontaneous
  Country: US (occurrence: US)
  Receive Date: 20141023
  Receipt Date: 20141023
  Transmission Date: 20150529
  Serious: No
  Sender: FDA-Public Use
  Company Number: US-ALLERGAN-1413313US

PATIENT
  Sex: Female

DRUGS (2)
  1. COMBIGAN[R] [Suspect]
     Active Substance: BRIMONIDINE TARTRATE\TIMOLOL MALEATE
     Indication: GLAUCOMA
     Dosage: TWICE DAILY
     Dates: start: 201310, end: 201406
  2. LUMIGAN [Suspect]
     Active Substance: BIMATOPROST
     Indication: GLAUCOMA
     Dosage: UNK
     Dates: start: 2012

REACTIONS (5)
  - Migraine [Recovered/Resolved]
  - Dry eye [Unknown]
  - Ocular hyperaemia [Recovered/Resolved]
  - Eye infection [Recovered/Resolved]
  - Eye pain [Recovered/Resolved]
